FAERS Safety Report 6902271-6 (Version None)
Quarter: 2010Q3

REPORT INFORMATION
  Report Type: 
  Country: None (occurrence: None)
  Receive Date: 20100803
  Receipt Date: 20080505
  Transmission Date: 20110219
  Serious: No
  Sender: FDA-Public Use
  Company Number: US-PFIZER INC-2008022006

PATIENT
  Sex: Female
  Weight: 99.5 kg

DRUGS (13)
  1. LYRICA [Suspect]
     Indication: FIBROMYALGIA
     Route: 048
     Dates: start: 20080101, end: 20080306
  2. LISINOPRIL AND HYDROCHLOROTHIAZIDE [Concomitant]
  3. SYNTHROID [Concomitant]
  4. CYTOMEL [Concomitant]
  5. ACETYLSALICYLIC ACID SRT [Concomitant]
  6. METFORMIN HCL [Concomitant]
  7. CELEBREX [Concomitant]
  8. MONTELUKAST SODIUM [Concomitant]
  9. CLARINEX [Concomitant]
  10. AMBIEN [Concomitant]
  11. XANAX [Concomitant]
  12. LEXAPRO [Concomitant]
  13. FLEXERIL [Concomitant]

REACTIONS (3)
  - ARTHRALGIA [None]
  - JOINT SWELLING [None]
  - PAIN [None]
